FAERS Safety Report 5026742-5 (Version None)
Quarter: 2006Q2

REPORT INFORMATION
  Report Type: 
  Country: None (occurrence: None)
  Receive Date: 20060615
  Receipt Date: 20060530
  Transmission Date: 20061013
  Serious: Yes (Life-Threatening, Hospitalization)
  Sender: FDA-Public Use
  Company Number: DE-MERCK-0606DEU00002

PATIENT
  Age: 70 Year
  Sex: Female
  Weight: 76 kg

DRUGS (5)
  1. FOSAMAX [Suspect]
     Indication: OSTEOPOROSIS
     Route: 048
     Dates: start: 20060508, end: 20060508
  2. ASPIRIN [Suspect]
     Indication: THROMBOCYTHAEMIA
     Route: 048
     Dates: start: 20040101
  3. VERAPAMIL [Concomitant]
     Indication: HYPERTROPHIC CARDIOMYOPATHY
     Route: 065
     Dates: start: 20040101
  4. CALCIUM CARBONATE AND CHOLECALCIFEROL [Concomitant]
     Route: 065
     Dates: start: 20040101
  5. [THERAPY UNSPECIFIED] [Concomitant]
     Indication: ABDOMINAL DISCOMFORT
     Route: 065
     Dates: start: 20040101

REACTIONS (5)
  - DUODENAL ULCER HAEMORRHAGE [None]
  - GASTRITIS EROSIVE [None]
  - REFLUX OESOPHAGITIS [None]
  - SYNCOPE [None]
  - UPPER GASTROINTESTINAL HAEMORRHAGE [None]
